FAERS Safety Report 4855926-1 (Version None)
Quarter: 2005Q4

REPORT INFORMATION
  Report Type: 
  Country: None (occurrence: None)
  Receive Date: 20051216
  Receipt Date: 20051205
  Transmission Date: 20060501
  Serious: Yes (Other)
  Sender: FDA-Public Use
  Company Number: FR-GLAXOSMITHKLINE-B0403058A

PATIENT
  Age: 84 Year
  Sex: Female
  Weight: 45 kg

DRUGS (5)
  1. ALKERAN [Suspect]
  2. EPREX [Concomitant]
  3. CORTISONE ACETATE TAB [Concomitant]
  4. ZOMETA [Concomitant]
  5. MORPHINE [Concomitant]

REACTIONS (2)
  - LEUKOPENIA [None]
  - POOR QUALITY DRUG ADMINISTERED [None]
